FAERS Safety Report 19491195 (Version 1)
Quarter: 2021Q3

REPORT INFORMATION
  Report Type: Spontaneous
  Country: US (occurrence: US)
  Receive Date: 20210705
  Receipt Date: 20210705
  Transmission Date: 20211014
  Serious: No
  Sender: FDA-Public Use
  Company Number: US-RECKITT BENCKISER HEALTHCARE INT LIMITED-RB-83071-2021

PATIENT
  Age: 84 Year
  Sex: Female

DRUGS (1)
  1. MUCINEX FAST?MAX DM MAX [Suspect]
     Active Substance: DEXTROMETHORPHAN HYDROBROMIDE\GUAIFENESIN
     Indication: SECRETION DISCHARGE
     Dosage: 20 MILLILITER, TID
     Route: 065

REACTIONS (1)
  - Drug ineffective [Not Recovered/Not Resolved]
